FAERS Safety Report 7328143-3 (Version None)
Quarter: 2011Q1

REPORT INFORMATION
  Report Type: 
  Country: None (occurrence: None)
  Receive Date: 20110303
  Receipt Date: 20110222
  Transmission Date: 20110831
  Serious: Yes (Death, Hospitalization)
  Sender: FDA-Public Use
  Company Number: PHHO2010US18670

PATIENT
  Weight: 85.28 kg

DRUGS (7)
  1. MAGNESIUM [Concomitant]
  2. TASIGNA [Suspect]
     Indication: CHRONIC MYELOID LEUKAEMIA
     Dosage: 800 MG, DAILY
     Route: 048
     Dates: start: 20100827
  3. TACROLIMUS [Concomitant]
  4. OMEPRAZOLE [Concomitant]
  5. PREDNISONE TAB [Concomitant]
  6. NORVASC [Concomitant]
  7. POTASSIUM [Concomitant]

REACTIONS (11)
  - SUDDEN DEATH [None]
  - BACTERAEMIA [None]
  - HYPOTENSION [None]
  - ADRENAL INSUFFICIENCY [None]
  - UNRESPONSIVE TO STIMULI [None]
  - HEADACHE [None]
  - SEPTIC EMBOLUS [None]
  - DEVICE RELATED INFECTION [None]
  - LEUKOCYTOSIS [None]
  - PYREXIA [None]
  - HYPERHIDROSIS [None]
